FAERS Safety Report 4302904-7 (Version None)
Quarter: 2004Q1

REPORT INFORMATION
  Report Type: 
  Country: None (occurrence: None)
  Receive Date: 20040220
  Receipt Date: 20040209
  Transmission Date: 20041129
  Serious: Yes (Hospitalization, Other)
  Sender: FDA-Public Use
  Company Number: US-JNJFOC-20040202597

PATIENT
  Age: 73 Year
  Sex: Male

DRUGS (1)
  1. INFLIXIMAB (INFLIXIMAB, RECOMBINANT) LYOPHILIZED POWDER [Suspect]
     Indication: RHEUMATOID ARTHRITIS
     Dosage: 200 MG, INTRAVENOUS
     Route: 042

REACTIONS (9)
  - BLOOD PRESSURE SYSTOLIC INCREASED [None]
  - BOWEL SOUNDS ABNORMAL [None]
  - DEPRESSED LEVEL OF CONSCIOUSNESS [None]
  - DIARRHOEA [None]
  - HYPOPHOSPHATAEMIA [None]
  - HYPOVOLAEMIA [None]
  - MENINGITIS LISTERIA [None]
  - SOMNOLENCE [None]
  - SPEECH DISORDER [None]
